FAERS Safety Report 14078690 (Version 2)
Quarter: 2018Q1

REPORT INFORMATION
  Report Type: Spontaneous
  Country: US (occurrence: US)
  Receive Date: 20171012
  Receipt Date: 20180216
  Transmission Date: 20180508
  Serious: No
  Sender: FDA-Public Use
  Company Number: US-MYLANLABS-2017M1023955

PATIENT
  Age: 9 Year
  Sex: Male

DRUGS (1)
  1. EPINEPHRINE. [Suspect]
     Active Substance: EPINEPHRINE
     Indication: HYPERSENSITIVITY
     Dosage: UNK
     Dates: start: 20170329, end: 20170329

REACTIONS (3)
  - Oral disorder [Recovering/Resolving]
  - Drug dose omission [Recovered/Resolved]
  - Device failure [Recovering/Resolving]

NARRATIVE: CASE EVENT DATE: 20170329
